FAERS Safety Report 8265013-0 (Version None)
Quarter: 2012Q2

REPORT INFORMATION
  Report Type: 
  Country: None (occurrence: None)
  Receive Date: 20120406
  Receipt Date: 20120323
  Transmission Date: 20120825
  Serious: Yes (Other)
  Sender: FDA-Public Use
  Company Number: JP-ROCHE-1053536

PATIENT
  Sex: Male

DRUGS (14)
  1. PROGRAF [Concomitant]
     Dosage: 4-10MG
     Route: 048
     Dates: start: 20080415
  2. PREDNISOLONE [Concomitant]
     Indication: PROPHYLAXIS AGAINST TRANSPLANT REJECTION
     Route: 042
     Dates: start: 20080406, end: 20080411
  3. PREDNISOLONE [Concomitant]
     Dosage: 5-30MG
     Route: 048
     Dates: start: 20080412
  4. SOLU-MEDROL [Concomitant]
     Indication: PANCREAS TRANSPLANT REJECTION
     Dosage: DOSAGE IS UNCERTAIN.
     Route: 041
     Dates: start: 20091001, end: 20091001
  5. SOLU-MEDROL [Concomitant]
     Dosage: DOSAGE IS UNCERTAIN.
     Route: 041
     Dates: start: 20100101, end: 20100101
  6. MYCOPHENOLATE MOFETIL (CELLCEPT) [Suspect]
     Route: 048
  7. SPANIDIN [Concomitant]
     Indication: PANCREAS TRANSPLANT REJECTION
     Dosage: DOSAGE IS UNCERTAIN.
     Route: 041
  8. PROGRAF [Concomitant]
     Indication: PROPHYLAXIS AGAINST TRANSPLANT REJECTION
     Dosage: 1.3-1.5MG
     Route: 042
     Dates: start: 20080405, end: 20080414
  9. SOLU-MEDROL [Concomitant]
     Dosage: DOSAGE IS UNCERTAIN.
     Route: 041
     Dates: start: 20090101, end: 20091101
  10. MYCOPHENOLATE MOFETIL (CELLCEPT) [Suspect]
     Indication: PROPHYLAXIS AGAINST TRANSPLANT REJECTION
     Route: 048
     Dates: start: 20080410
  11. SIMULECT [Concomitant]
     Indication: PROPHYLAXIS AGAINST TRANSPLANT REJECTION
     Route: 042
     Dates: start: 20080405, end: 20080409
  12. LANTUS [Concomitant]
     Indication: TYPE 1 DIABETES MELLITUS
     Dosage: 6-12 IU
     Route: 058
     Dates: start: 20080421
  13. HUMULIN R [Concomitant]
     Indication: TYPE 1 DIABETES MELLITUS
     Dosage: 24-50 IU
     Route: 058
     Dates: start: 20080405, end: 20080413
  14. NOVORAPID [Concomitant]
     Indication: TYPE 1 DIABETES MELLITUS
     Dosage: 16-61 IU
     Route: 058
     Dates: start: 20080414

REACTIONS (1)
  - PULMONARY EMBOLISM [None]
